FAERS Safety Report 16702520 (Version 3)
Quarter: 2019Q3

REPORT INFORMATION
  Report Type: Spontaneous
  Country: US (occurrence: US)
  Receive Date: 20190814
  Receipt Date: 20190927
  Transmission Date: 20191004
  Serious: Yes (Other)
  Sender: FDA-Public Use
  Company Number: US-JNJFOC-20190814335

PATIENT
  Age: 72 Year
  Sex: Female
  Weight: 49.49 kg

DRUGS (2)
  1. XARELTO [Suspect]
     Active Substance: RIVAROXABAN
     Route: 048
  2. XARELTO [Suspect]
     Active Substance: RIVAROXABAN
     Indication: DEEP VEIN THROMBOSIS
     Route: 048
     Dates: start: 20190425, end: 20190813

REACTIONS (7)
  - Dysphagia [Unknown]
  - Back pain [Recovered/Resolved]
  - Inappropriate schedule of product administration [Unknown]
  - Urinary retention [Unknown]
  - Product lot number issue [Unknown]
  - Alopecia [Not Recovered/Not Resolved]
  - Off label use [Unknown]

NARRATIVE: CASE EVENT DATE: 2019
